FAERS Safety Report 6636747-6 (Version None)
Quarter: 2010Q1

REPORT INFORMATION
  Report Type: 
  Country: None (occurrence: None)
  Receive Date: 20100312
  Receipt Date: 20100301
  Transmission Date: 20100710
  Serious: Yes (Other)
  Sender: FDA-Public Use
  Company Number: 524887

PATIENT
  Age: 7 Year
  Sex: Male

DRUGS (7)
  1. BLEOMYCIN SULFATE [Suspect]
     Indication: HODGKIN'S DISEASE
  2. DACARBAZINE [Suspect]
     Indication: HODGKIN'S DISEASE
  3. VINCRISTINE SULFATE [Suspect]
     Indication: HODGKIN'S DISEASE
  4. PROCARBAZINE HYDROCHLORIDE [Suspect]
     Indication: HODGKIN'S DISEASE
  5. VINBLASTINE SULFATE [Suspect]
     Indication: HODGKIN'S DISEASE
  6. DOXORUBICIN HCL [Suspect]
     Indication: HODGKIN'S DISEASE
  7. (NITROGEN MUSTARD) [Suspect]
     Indication: HODGKIN'S DISEASE

REACTIONS (1)
  - MYELODYSPLASTIC SYNDROME [None]
